FAERS Safety Report 21015628 (Version 1)
Quarter: 2022Q2

REPORT INFORMATION
  Report Type: Spontaneous
  Country: US (occurrence: US)
  Receive Date: 20220628
  Receipt Date: 20220628
  Transmission Date: 20220721
  Serious: Yes (Other)
  Sender: FDA-Public Use
  Company Number: US-SUN PHARMACEUTICAL INDUSTRIES LTD-2022R1-342231

PATIENT
  Age: 28 Year
  Sex: Female

DRUGS (2)
  1. NIFEDIPINE [Suspect]
     Active Substance: NIFEDIPINE
     Indication: Hypertension
     Dosage: 30 MILLIGRAM, DAILY
     Route: 065
  2. NIFEDIPINE [Suspect]
     Active Substance: NIFEDIPINE
     Dosage: 60 MILLIGRAM, DAILY
     Route: 065

REACTIONS (6)
  - Pre-eclampsia [Unknown]
  - Exposure during pregnancy [Unknown]
  - Abortion induced [Unknown]
  - Blood uric acid increased [Unknown]
  - Drug ineffective [Unknown]
  - Live birth [Unknown]
